FAERS Safety Report 7179166-9 (Version None)
Quarter: 2010Q4

REPORT INFORMATION
  Report Type: 
  Country: None (occurrence: None)
  Receive Date: 20101209
  Receipt Date: 20101201
  Transmission Date: 20110411
  Serious: Yes (Life-Threatening)
  Sender: FDA-Public Use
  Company Number: CL-275-2010

PATIENT
  Age: 30 Year
  Sex: Female

DRUGS (3)
  1. AMIODARONE UNK [Suspect]
  2. DILTIAZEM [Suspect]
  3. METOPROLOL UNK [Suspect]

REACTIONS (4)
  - ANURIA [None]
  - CARDIOGENIC SHOCK [None]
  - CONFUSIONAL STATE [None]
  - OVERDOSE [None]
